FAERS Safety Report 6158614-7 (Version None)
Quarter: 2009Q2

REPORT INFORMATION
  Report Type: 
  Country: None (occurrence: None)
  Receive Date: 20090415
  Receipt Date: 20090408
  Transmission Date: 20091009
  Serious: Yes (Death)
  Sender: FDA-Public Use
  Company Number: 8034863

PATIENT
  Age: 24 Year
  Sex: Female
  Weight: 57.47 kg

DRUGS (2)
  1. KEPPRA [Suspect]
     Dosage: A FEW YEARS
  2. KEPPRA [Suspect]

REACTIONS (1)
  - DEATH [None]
